FAERS Safety Report 8473799-5 (Version None)
Quarter: 2012Q2

REPORT INFORMATION
  Report Type: 
  Country: None (occurrence: None)
  Receive Date: 20120628
  Receipt Date: 20111118
  Transmission Date: 20120825
  Serious: Yes (Death)
  Sender: FDA-Public Use
  Company Number: US-MYLANLABS-2011S1023767

PATIENT
  Age: 68 Year
  Sex: Male

DRUGS (9)
  1. CLOZAPINE [Suspect]
  2. ATIVAN [Concomitant]
  3. PROTONIX [Concomitant]
  4. RISPERDAL [Concomitant]
  5. PREDNISONE TAB [Concomitant]
  6. BRONCHODIL /03509501/ [Concomitant]
  7. INTRAVENOUS FLUID [Concomitant]
  8. CLOZAPINE [Suspect]
     Indication: SCHIZOPHRENIA
     Route: 048
  9. HEPARIN [Concomitant]

REACTIONS (1)
  - PNEUMONITIS [None]
